FAERS Safety Report 6093599-3 (Version None)
Quarter: 2009Q1

REPORT INFORMATION
  Report Type: 
  Country: None (occurrence: None)
  Receive Date: 20090219
  Receipt Date: 20081023
  Transmission Date: 20090719
  Serious: No
  Sender: FDA-Public Use
  Company Number: WAES 0810USA04384

PATIENT

DRUGS (2)
  1. JANUVIA [Suspect]
     Indication: DIABETES MELLITUS
     Dosage: PO
     Route: 048
  2. LIPITOR [Concomitant]

REACTIONS (1)
  - HEPATIC ENZYME INCREASED [None]
